FAERS Safety Report 4417881-8 (Version None)
Quarter: 2004Q3

REPORT INFORMATION
  Report Type: 
  Country: None (occurrence: None)
  Receive Date: 20040803
  Receipt Date: 20040729
  Transmission Date: 20050211
  Serious: Yes (Hospitalization, Other)
  Sender: FDA-Public Use
  Company Number: FR-SHR-04-023695

PATIENT
  Age: 47 Year
  Sex: Male

DRUGS (4)
  1. SOTALOL HCL [Suspect]
     Indication: PULMONARY SARCOIDOSIS
     Dosage: 2 TAB(S), 1X/DAY, ORAL
     Route: 048
     Dates: start: 19920101, end: 20021215
  2. PREDNISONE [Suspect]
     Indication: PULMONARY SARCOIDOSIS
     Dosage: 40 MG, 1X/DAY, ORAL
     Route: 048
     Dates: start: 19870101, end: 20021215
  3. FLECAINIDE ACETATE [Suspect]
     Indication: PULMONARY SARCOIDOSIS
     Dosage: 50 MG, 1X/DAY, ORAL
     Route: 048
  4. HYDROCORTISONE [Concomitant]

REACTIONS (4)
  - CHOLESTASIS [None]
  - HEPATIC NECROSIS [None]
  - HEPATITIS CHRONIC PERSISTENT [None]
  - Q FEVER [None]
